FAERS Safety Report 9210453 (Version 1)
Quarter: 2013Q2

REPORT INFORMATION
  Report Type: Spontaneous
  Country: US (occurrence: US)
  Receive Date: 20130404
  Receipt Date: 20130404
  Transmission Date: 20140414
  Serious: Yes (Hospitalization)
  Sender: FDA-Public Use
  Company Number: US-GILEAD-2013-0072588

PATIENT
  Sex: Male

DRUGS (8)
  1. LETAIRIS [Suspect]
     Indication: PRODUCT USED FOR UNKNOWN INDICATION
     Dosage: 5 MG, QD
     Dates: start: 20130214
  2. TYVASO [Suspect]
  3. SINGULAIR [Concomitant]
  4. ADCIRCA [Concomitant]
  5. MODAFINIL [Concomitant]
  6. POTASSIUM [Concomitant]
  7. FUROSEMIDE [Concomitant]
  8. COUMADIN                           /00014802/ [Concomitant]

REACTIONS (1)
  - Atrial fibrillation [Unknown]
